FAERS Safety Report 13458904 (Version 2)
Quarter: 2017Q2

REPORT INFORMATION
  Report Type: Report from Study
  Country: CA (occurrence: CA)
  Receive Date: 20170419
  Receipt Date: 20170502
  Transmission Date: 20170830
  Serious: Yes (Other)
  Sender: FDA-Public Use
  Company Number: CA-AMGEN-CANSL2017051534

PATIENT
  Age: 45 Year
  Sex: Male
  Weight: 85.6 kg

DRUGS (5)
  1. ENBREL [Suspect]
     Active Substance: ETANERCEPT
     Indication: RHEUMATOID ARTHRITIS
     Dosage: 50 MG, QWK
     Route: 058
     Dates: start: 20161115, end: 201701
  2. WELLBUTRIN [Concomitant]
     Active Substance: BUPROPION HYDROCHLORIDE
     Indication: DEPRESSION
     Dosage: 300 MG, QD
     Dates: start: 20160330
  3. COVERSYL PLUS [Concomitant]
     Active Substance: INDAPAMIDE\PERINDOPRIL
     Indication: HYPERTENSION
     Dosage: 1.25/4 MG, ONCE A DAY
     Dates: start: 20160831
  4. SERTRALINE [Concomitant]
     Active Substance: SERTRALINE HYDROCHLORIDE
     Indication: DEPRESSION
     Dosage: 50 MG, QD
     Dates: start: 20160530
  5. ENBREL [Suspect]
     Active Substance: ETANERCEPT
     Dosage: 50 MG, QWK
     Route: 058
     Dates: start: 2017, end: 20170403

REACTIONS (9)
  - Lip exfoliation [Unknown]
  - Injection site inflammation [Unknown]
  - Migraine [Unknown]
  - Feeling abnormal [Unknown]
  - Injection site erythema [Recovered/Resolved]
  - Injection site pruritus [Unknown]
  - Sinusitis [Recovered/Resolved]
  - Tongue exfoliation [Recovered/Resolved]
  - Oral mucosal exfoliation [Recovered/Resolved]

NARRATIVE: CASE EVENT DATE: 201611
